FAERS Safety Report 8264694-5 (Version None)
Quarter: 2012Q2

REPORT INFORMATION
  Report Type: 
  Country: None (occurrence: None)
  Receive Date: 20120406
  Receipt Date: 20120319
  Transmission Date: 20120825
  Serious: Yes (Hospitalization)
  Sender: FDA-Public Use
  Company Number: ZA-SANOFI-AVENTIS-2010SA005550

PATIENT
  Age: 79 Year
  Sex: Male
  Weight: 68 kg

DRUGS (20)
  1. AFLIBERCEPT [Suspect]
     Route: 042
     Dates: start: 20091029, end: 20091029
  2. BISOPROLOL FUMARATE [Concomitant]
     Dates: start: 20060101
  3. AFLIBERCEPT [Suspect]
     Indication: PROSTATE CANCER METASTATIC
     Route: 042
     Dates: start: 20090625, end: 20090625
  4. PREDNISOLONE [Suspect]
     Indication: PROSTATE CANCER METASTATIC
     Dates: start: 20090625, end: 20091208
  5. CRESTOR [Concomitant]
     Dates: start: 20060101
  6. ACETYLSALICYLIC ACID SRT [Concomitant]
     Dates: start: 20060701
  7. PROCYDIN [Concomitant]
  8. SCOPOLAMINE [Concomitant]
     Dates: start: 20091019
  9. VITAMIN B COMPLEX CAP [Concomitant]
  10. ZOLADEX [Concomitant]
     Dates: start: 20070419
  11. DOCETAXEL [Suspect]
     Indication: PROSTATE CANCER METASTATIC
     Route: 042
     Dates: start: 20090625, end: 20090625
  12. DOCETAXEL [Suspect]
     Route: 042
     Dates: start: 20091029, end: 20091029
  13. FOLIC ACID [Concomitant]
  14. CLOPAMON ^INTRAMED^ [Concomitant]
     Dates: start: 20090626
  15. CARVEDILOL [Concomitant]
     Dates: start: 20090626
  16. WARFARIN SODIUM [Concomitant]
     Dates: start: 20080601
  17. LANSOPRAZOLE [Concomitant]
     Dates: start: 20090626
  18. MICARDIS [Concomitant]
     Dates: start: 20090528
  19. LEVOTHYROXINE SODIUM [Concomitant]
     Dates: start: 19790101
  20. LOVAZA [Concomitant]

REACTIONS (1)
  - ENTEROVESICAL FISTULA [None]
